FAERS Safety Report 5916557-5 (Version None)
Quarter: 2008Q4

REPORT INFORMATION
  Report Type: 
  Country: None (occurrence: None)
  Receive Date: 20081013
  Receipt Date: 20081006
  Transmission Date: 20090506
  Serious: Yes (Other)
  Sender: FDA-Public Use
  Company Number: D0058366A

PATIENT
  Sex: Female

DRUGS (2)
  1. LAMICTAL [Suspect]
     Dosage: 350MG PER DAY
     Route: 048
  2. THYRONAJOD [Concomitant]
     Dosage: 50MG PER DAY
     Route: 065

REACTIONS (1)
  - VISUAL ACUITY REDUCED [None]
